FAERS Safety Report 8859005 (Version 1)
Quarter: 2012Q4

REPORT INFORMATION
  Report Type: Spontaneous
  Country: US (occurrence: None)
  Receive Date: 20121022
  Receipt Date: 20121022
  Transmission Date: 20130627
  Serious: Yes (Other)
  Sender: FDA-Public Use
  Company Number: JPI-P-025706

PATIENT
  Age: 37 Year
  Sex: Male

DRUGS (15)
  1. XYREM [Suspect]
     Route: 048
     Dates: start: 200302
  2. XYREM [Suspect]
     Dosage: (4GM (1ST), 3GM (2ND), 2GM (3RD PRN)
     Route: 048
  3. ZIPRASIDONE HYDROCHLORIDE [Suspect]
  4. ZIPRASIDONE HYDROCHLORIDE [Suspect]
  5. DEXTROAMPHETAMINE [Suspect]
     Dates: end: 2008
  6. PROTRIPTYLINE [Suspect]
     Dates: end: 2008
  7. METHYLPHENIDATE HYDROCHLORIDE [Concomitant]
  8. METHSCOPOLAMINE BROMIDE [Concomitant]
  9. LOSARTAN POTASSIUM [Concomitant]
  10. ESOMEPRAZOLE MAGNESIUM [Concomitant]
  11. QUETIAPINE FUMARATE [Concomitant]
  12. FLUTICASONE PROPIONATE [Concomitant]
  13. ALBUTEROL SULFATE; IPRATROPIUM BROMIDE [Concomitant]
  14. EZETIMIBE; SIMVASTATIN [Concomitant]
  15. METOCLOPRAMIDE HYDROCHLORIDE [Concomitant]

REACTIONS (11)
  - Lower limb fracture [None]
  - Fall [None]
  - Wrist fracture [None]
  - Pain [None]
  - Hallucination, auditory [None]
  - Concussion [None]
  - Injury [None]
  - Blood pressure increased [None]
  - Mood swings [None]
  - Anger [None]
  - Sleep disorder [None]
